FAERS Safety Report 23176529 (Version 1)
Quarter: 2023Q4

REPORT INFORMATION
  Report Type: Spontaneous
  Country: JP (occurrence: JP)
  Receive Date: 20231113
  Receipt Date: 20231113
  Transmission Date: 20240109
  Serious: Yes (Hospitalization)
  Sender: FDA-Public Use
  Company Number: JP-MYLANLABS-2023M1119543

PATIENT
  Age: 85 Year
  Sex: Male

DRUGS (4)
  1. CLARITHROMYCIN [Suspect]
     Active Substance: CLARITHROMYCIN
     Indication: Vascular device infection
     Dosage: 400 MILLIGRAM
     Route: 048
  2. IMIPENEM AND CILASTATIN [Concomitant]
     Active Substance: CILASTATIN SODIUM\IMIPENEM
     Indication: Vascular device infection
     Dosage: 500 MILLIGRAM
     Route: 065
  3. AMIKACIN [Concomitant]
     Active Substance: AMIKACIN
     Indication: Vascular device infection
     Dosage: 300 MILLIGRAM
     Route: 065
  4. SITAFLOXACIN [Concomitant]
     Active Substance: SITAFLOXACIN
     Indication: Vascular device infection
     Dosage: 100 MILLIGRAM, QD
     Route: 065

REACTIONS (1)
  - Pathogen resistance [Unknown]
